FAERS Safety Report 24044786 (Version 2)
Quarter: 2025Q4

REPORT INFORMATION
  Report Type: Spontaneous
  Country: EU (occurrence: EU)
  Receive Date: 20240703
  Receipt Date: 20251016
  Transmission Date: 20260118
  Serious: Yes (Death, Other)
  Sender: RANBAXY
  Company Number: EU-SUN PHARMACEUTICAL INDUSTRIES LTD-2024R1-453727

PATIENT
  Age: 31 Year
  Sex: Male

DRUGS (14)
  1. METHADONE [Suspect]
     Active Substance: METHADONE HYDROCHLORIDE
     Indication: Product used for unknown indication
     Dosage: UNK
     Route: 042
  2. TILIDINE [Suspect]
     Active Substance: TILIDINE
     Indication: Product used for unknown indication
     Route: 065
  3. TILIDINE [Suspect]
     Active Substance: TILIDINE
     Route: 065
  4. SUFENTANIL [Suspect]
     Active Substance: SUFENTANIL
     Indication: Product used for unknown indication
     Route: 065
  5. SUFENTANIL [Suspect]
     Active Substance: SUFENTANIL
     Route: 065
  6. MORPHINE [Suspect]
     Active Substance: MORPHINE
     Indication: Product used for unknown indication
     Route: 065
  7. MORPHINE [Suspect]
     Active Substance: MORPHINE
     Route: 065
  8. MIDAZOLAM [Suspect]
     Active Substance: MIDAZOLAM
     Indication: Product used for unknown indication
     Route: 065
  9. MIDAZOLAM [Suspect]
     Active Substance: MIDAZOLAM
     Route: 065
  10. DIAZEPAM [Suspect]
     Active Substance: DIAZEPAM
     Indication: Product used for unknown indication
     Route: 065
  11. DIAZEPAM [Suspect]
     Active Substance: DIAZEPAM
     Route: 065
  12. CLONAZEPAM [Suspect]
     Active Substance: CLONAZEPAM
     Indication: Product used for unknown indication
     Route: 065
  13. CLONAZEPAM [Suspect]
     Active Substance: CLONAZEPAM
     Route: 065
  14. LIDOCAINE [Concomitant]
     Active Substance: LIDOCAINE
     Indication: Product used for unknown indication
     Route: 065

REACTIONS (22)
  - Toxicity to various agents [Fatal]
  - Hepatitis C [Fatal]
  - Pancreatic enzymes increased [Fatal]
  - Loss of consciousness [Fatal]
  - Brain oedema [Fatal]
  - Brain herniation [Fatal]
  - Encephalomalacia [Fatal]
  - Lung hyperinflation [Fatal]
  - Pulmonary oedema [Fatal]
  - Cardiomegaly [Fatal]
  - Hepatomegaly [Fatal]
  - Kidney congestion [Fatal]
  - Cerebral haemorrhage [Fatal]
  - Brain hypoxia [Fatal]
  - Cerebral ischaemia [Fatal]
  - Emphysema [Fatal]
  - Pulmonary alveolar haemorrhage [Fatal]
  - Pulmonary congestion [Fatal]
  - Brain injury [Fatal]
  - Depressed level of consciousness [Fatal]
  - Cardiac failure [Fatal]
  - Multiple organ dysfunction syndrome [Fatal]
